FAERS Safety Report 4489492-X (Version None)
Quarter: 2004Q4

REPORT INFORMATION
  Report Type: 
  Country: None (occurrence: None)
  Receive Date: 20041101
  Receipt Date: 20041025
  Transmission Date: 20050328
  Serious: Yes (Other)
  Sender: FDA-Public Use
  Company Number: 200418231US

PATIENT
  Age: 30 Year
  Sex: Male

DRUGS (2)
  1. KETEK [Suspect]
     Indication: PNEUMONIA
     Route: 048
  2. HYDROCODONE/COUGH PREPARATION [Concomitant]

REACTIONS (1)
  - STEVENS-JOHNSON SYNDROME [None]
